FAERS Safety Report 16994221 (Version 1)
Quarter: 2019Q4

REPORT INFORMATION
  Report Type: Spontaneous
  Country: US (occurrence: US)
  Receive Date: 20191105
  Receipt Date: 20191105
  Transmission Date: 20200122
  Serious: Yes (Hospitalization, Other)
  Sender: FDA-Public Use
  Company Number: US-GLAXOSMITHKLINE-US2019GSK196690

PATIENT
  Age: 58 Year
  Sex: Female

DRUGS (4)
  1. LANSOPRAZOLE. [Suspect]
     Active Substance: LANSOPRAZOLE
     Indication: DYSPEPSIA
  2. CHLORTHALIDONE. [Concomitant]
     Active Substance: CHLORTHALIDONE
     Indication: PRODUCT USED FOR UNKNOWN INDICATION
     Dosage: 12.5 MG, QD
  3. CALCITRIOL. [Concomitant]
     Active Substance: CALCITRIOL
     Indication: PRODUCT USED FOR UNKNOWN INDICATION
     Dosage: 0.5 UG, UNK
  4. LANSOPRAZOLE. [Suspect]
     Active Substance: LANSOPRAZOLE
     Indication: ABDOMINAL DISTENSION
     Dosage: UNK

REACTIONS (16)
  - Hypocalcaemia [Unknown]
  - Chvostek^s sign [Unknown]
  - Blood phosphorus increased [Unknown]
  - Grip strength decreased [Unknown]
  - Paraesthesia oral [Unknown]
  - Muscle spasms [Recovered/Resolved]
  - Calcium ionised decreased [Unknown]
  - Electrocardiogram QT prolonged [Unknown]
  - Hypoaesthesia [Unknown]
  - Blood calcium decreased [Unknown]
  - Tetany [Unknown]
  - Trousseau^s sign [Unknown]
  - Blood magnesium decreased [Unknown]
  - Blood parathyroid hormone decreased [Unknown]
  - Vitamin D decreased [Unknown]
  - Malabsorption [Unknown]
